FAERS Safety Report 9498522 (Version 1)
Quarter: 2013Q3

REPORT INFORMATION
  Report Type: Spontaneous
  Country: FR (occurrence: FR)
  Receive Date: 20130904
  Receipt Date: 20130904
  Transmission Date: 20140515
  Serious: Yes (Other)
  Sender: FDA-Public Use
  Company Number: FR-GLAXOSMITHKLINE-B0918713A

PATIENT
  Age: 55 Year
  Sex: Female

DRUGS (9)
  1. ZELITREX [Suspect]
     Indication: PRODUCT USED FOR UNKNOWN INDICATION
     Dosage: 2TAB PER DAY
     Route: 048
     Dates: start: 20130702, end: 20130726
  2. VELCADE [Suspect]
     Indication: PLASMA CELL MYELOMA
     Route: 048
     Dates: start: 20130702, end: 20130713
  3. THALIDOMIDE [Suspect]
     Indication: PLASMA CELL MYELOMA
     Dosage: 1UNIT PER DAY
     Route: 048
     Dates: start: 20130702, end: 20130726
  4. INEXIUM [Suspect]
     Indication: PRODUCT USED FOR UNKNOWN INDICATION
     Route: 048
     Dates: start: 20130702, end: 20130726
  5. CERAZETTE [Concomitant]
     Route: 048
     Dates: start: 20130715, end: 20130726
  6. KARDEGIC [Concomitant]
     Dosage: 75MG PER DAY
     Route: 065
  7. CACIT D3 [Concomitant]
     Dosage: 2UNIT PER DAY
  8. ZOMETA [Concomitant]
     Dosage: 4MG MONTHLY
     Dates: start: 20130702
  9. DEXAMETHASONE [Concomitant]
     Dates: start: 20130702

REACTIONS (1)
  - Hepatocellular injury [Recovered/Resolved]
